FAERS Safety Report 22634497 (Version 1)
Quarter: 2023Q2

REPORT INFORMATION
  Report Type: Spontaneous
  Country: DE (occurrence: DE)
  Receive Date: 20230623
  Receipt Date: 20230623
  Transmission Date: 20230721
  Serious: Yes (Hospitalization)
  Sender: FDA-Public Use
  Company Number: DE-SERVIER-S23006907

PATIENT

DRUGS (2)
  1. TIBSOVO [Suspect]
     Active Substance: IVOSIDENIB
     Indication: Pancreatic carcinoma
     Dosage: UNK
     Route: 048
     Dates: end: 20221020
  2. TIBSOVO [Suspect]
     Active Substance: IVOSIDENIB
     Dosage: UNK
     Route: 048
     Dates: start: 20221022

REACTIONS (3)
  - Liver function test increased [Unknown]
  - Constipation [Recovered/Resolved]
  - Subileus [Recovered/Resolved]

NARRATIVE: CASE EVENT DATE: 20220627
